FAERS Safety Report 10046877 (Version 1)
Quarter: 2014Q1

REPORT INFORMATION
  Report Type: Spontaneous
  Country: US (occurrence: None)
  Receive Date: 20140328
  Receipt Date: 20140328
  Transmission Date: 20141002
  Serious: Yes (Hospitalization)
  Sender: FDA-Public Use
  Company Number: None

PATIENT
  Age: 19 Year
  Sex: Male
  Weight: 110 kg

DRUGS (1)
  1. LEXAPRO [Suspect]
     Indication: ANXIETY
     Route: 048

REACTIONS (3)
  - Paraesthesia [None]
  - Feeling abnormal [None]
  - Convulsion [None]
